FAERS Safety Report 9485110 (Version 1)
Quarter: 2013Q3

REPORT INFORMATION
  Report Type: Spontaneous
  Country: US (occurrence: US)
  Receive Date: 20130828
  Receipt Date: 20130828
  Transmission Date: 20140515
  Serious: No
  Sender: FDA-Public Use
  Company Number: US-ABBOTT-13P-163-1112820-00

PATIENT
  Age: 67 Year
  Sex: Male
  Weight: 90.8 kg

DRUGS (1)
  1. ANDROGEL [Suspect]
     Indication: BLOOD TESTOSTERONE DECREASED
     Route: 061
     Dates: start: 201207, end: 201306

REACTIONS (4)
  - Hair texture abnormal [Recovering/Resolving]
  - Alopecia [Recovering/Resolving]
  - Hot flush [Recovering/Resolving]
  - Erythema [Recovered/Resolved]
